FAERS Safety Report 15229760 (Version 1)
Quarter: 2018Q3

REPORT INFORMATION
  Report Type: Spontaneous
  Country: US (occurrence: US)
  Receive Date: 20180802
  Receipt Date: 20180802
  Transmission Date: 20181010
  Serious: Yes (Other)
  Sender: FDA-Public Use
  Company Number: US-ACCORD-062269

PATIENT
  Age: 43 Year
  Sex: Female
  Weight: 111.13 kg

DRUGS (4)
  1. HERCEPTIN [Concomitant]
     Active Substance: TRASTUZUMAB
     Dates: start: 20121031, end: 20121205
  2. PACLITAXEL/PACLITAXEL LIPOSOME [Concomitant]
     Dates: start: 20121031, end: 20121205
  3. DOCETAXEL ACCORD [Suspect]
     Active Substance: DOCETAXEL
     Indication: BREAST CANCER
     Dosage: NO OF CYCLE: 03
     Route: 042
     Dates: start: 20121031, end: 20121205
  4. TAXOL [Concomitant]
     Active Substance: PACLITAXEL
     Dates: start: 20121031, end: 20121205

REACTIONS (1)
  - Alopecia [Not Recovered/Not Resolved]

NARRATIVE: CASE EVENT DATE: 20130711
